FAERS Safety Report 5029849-1 (Version None)
Quarter: 2006Q2

REPORT INFORMATION
  Report Type: 
  Country: None (occurrence: None)
  Receive Date: 20060620
  Receipt Date: 20060505
  Transmission Date: 20061013
  Serious: Yes (Other)
  Sender: FDA-Public Use
  Company Number: HQWYE223608MAY06

PATIENT
  Sex: Female
  Weight: 65 kg

DRUGS (6)
  1. ENBREL [Suspect]
     Indication: RHEUMATOID ARTHRITIS
     Route: 058
     Dates: start: 20040527
  2. ALDACTONE [Concomitant]
     Route: 065
  3. INDOMETHACIN [Concomitant]
     Indication: ANTIINFLAMMATORY THERAPY
     Route: 065
  4. AMBROXOL HYDROCHLORIDE [Concomitant]
     Indication: COUGH
     Route: 065
  5. ERYTHROMYCIN [Concomitant]
     Route: 065
  6. PROGLUMETACIN [Concomitant]
     Indication: ANTIINFLAMMATORY THERAPY
     Route: 065

REACTIONS (1)
  - RENAL FAILURE [None]
